FAERS Safety Report 14348852 (Version 1)
Quarter: 2018Q1

REPORT INFORMATION
  Report Type: Spontaneous
  Country: CA (occurrence: CA)
  Receive Date: 20180104
  Receipt Date: 20180104
  Transmission Date: 20180509
  Serious: Yes (Other)
  Sender: FDA-Public Use
  Company Number: CA-CONCORDIA PHARMACEUTICALS INC.-MAPI_00010606

PATIENT
  Sex: Female

DRUGS (12)
  1. PLAQUENIL [Suspect]
     Active Substance: HYDROXYCHLOROQUINE SULFATE
     Indication: PRODUCT USED FOR UNKNOWN INDICATION
     Route: 065
  2. HUMIRA [Concomitant]
     Active Substance: ADALIMUMAB
  3. PREDNISONE. [Concomitant]
     Active Substance: PREDNISONE
  4. ACTEMRA [Concomitant]
     Active Substance: TOCILIZUMAB
  5. TRAMADOL. [Concomitant]
     Active Substance: TRAMADOL
  6. SULFASALAZINE. [Concomitant]
     Active Substance: SULFASALAZINE
  7. ARAVA [Suspect]
     Active Substance: LEFLUNOMIDE
     Indication: PRODUCT USED FOR UNKNOWN INDICATION
     Route: 065
  8. INDOCIN [Concomitant]
     Active Substance: INDOMETHACIN
  9. METHOTREXATE. [Suspect]
     Active Substance: METHOTREXATE
     Indication: RHEUMATOID ARTHRITIS
     Route: 065
  10. AMOXICILLIN. [Concomitant]
     Active Substance: AMOXICILLIN
     Dates: end: 20160316
  11. RITUXAN [Concomitant]
     Active Substance: RITUXIMAB
  12. ORENCIA [Concomitant]
     Active Substance: ABATACEPT

REACTIONS (6)
  - Inflammation [Unknown]
  - Rheumatoid arthritis [Unknown]
  - Therapeutic response decreased [Unknown]
  - Mouth ulceration [Not Recovered/Not Resolved]
  - Candida infection [Unknown]
  - Drug resistance [Unknown]
